FAERS Safety Report 8538797-1 (Version None)
Quarter: 2012Q2

REPORT INFORMATION
  Report Type: 
  Country: None (occurrence: None)
  Receive Date: 20120416
  Receipt Date: 20090130
  Transmission Date: 20120825
  Serious: Yes (Other)
  Sender: FDA-Public Use
  Company Number: PHEH2008US10716

PATIENT
  Sex: Male

DRUGS (2)
  1. DIOVAN [Suspect]
     Indication: CORONARY ARTERY DISEASE
     Dosage: 160 MG, ORAL
     Route: 048
     Dates: start: 20060501, end: 20081130
  2. DIOVAN [Suspect]
     Indication: HYPERTENSION
     Dosage: 160 MG, ORAL
     Route: 048
     Dates: start: 20060501, end: 20081130

REACTIONS (1)
  - HYPOTENSION [None]
